FAERS Safety Report 16824132 (Version 1)
Quarter: 2019Q3

REPORT INFORMATION
  Report Type: Spontaneous
  Country: DE (occurrence: DE)
  Receive Date: 20190918
  Receipt Date: 20190918
  Transmission Date: 20191005
  Serious: Yes (Other)
  Sender: FDA-Public Use
  Company Number: DE-ABBVIE-19K-062-2930017-00

PATIENT
  Age: 28 Year
  Sex: Female
  Weight: 64 kg

DRUGS (2)
  1. INFLUENZA VACCINE [Concomitant]
     Active Substance: INFLUENZA VIRUS VACCINE
     Indication: IMMUNISATION
     Route: 030
     Dates: start: 20181113, end: 20181113
  2. HUMIRA [Suspect]
     Active Substance: ADALIMUMAB
     Indication: CROHN^S DISEASE
     Dosage: 40 [MG/D (ALLE 2 WK) ]
     Route: 058
     Dates: start: 20180402, end: 20181205

REACTIONS (2)
  - Oligohydramnios [Recovered/Resolved]
  - Exposure during pregnancy [Unknown]
